FAERS Safety Report 5239264-3 (Version None)
Quarter: 2007Q1

REPORT INFORMATION
  Report Type: 
  Country: None (occurrence: None)
  Receive Date: 20061208
  Receipt Date: 20050901
  Transmission Date: 20070707
  Serious: Yes (Other)
  Sender: FDA-Public Use
  Company Number: 2005UW13070

PATIENT
  Age: 65 Year
  Sex: Female
  Weight: 93.893 kg

DRUGS (7)
  1. CRESTOR [Suspect]
     Indication: BLOOD CHOLESTEROL
     Dates: start: 20050401
  2. CRESTOR [Suspect]
     Indication: BLOOD CHOLESTEROL
     Dosage: CUT DOWN DOSE
  3. GLUCOPHAGE [Concomitant]
  4. BENICAR [Concomitant]
  5. GLIPIZIDE [Concomitant]
  6. XANAX [Concomitant]
  7. ASPIRIN [Concomitant]

REACTIONS (6)
  - CARPAL TUNNEL SYNDROME [None]
  - MUSCLE DISORDER [None]
  - MUSCLE SPASMS [None]
  - MUSCULOSKELETAL PAIN [None]
  - NECK PAIN [None]
  - PAIN IN EXTREMITY [None]
